FAERS Safety Report 25821309 (Version 2)
Quarter: 2025Q4

REPORT INFORMATION
  Report Type: Spontaneous
  Country: JP (occurrence: JP)
  Receive Date: 20250919
  Receipt Date: 20251013
  Transmission Date: 20260118
  Serious: Yes (Death)
  Sender: NOVARTIS
  Company Number: JP-002147023-NVSJ2025JP009476

PATIENT
  Age: 72 Day
  Sex: Female

DRUGS (1)
  1. ILARIS [Suspect]
     Active Substance: CANAKINUMAB
     Indication: Mevalonate kinase deficiency
     Dosage: UNK
     Route: 058

REACTIONS (4)
  - Mevalonate kinase deficiency [Fatal]
  - Disease progression [Fatal]
  - Liver disorder [Fatal]
  - Off label use [Unknown]
